FAERS Safety Report 9955318 (Version 1)
Quarter: 2014Q1

REPORT INFORMATION
  Report Type: Report from Study
  Country: US (occurrence: US)
  Receive Date: 20140304
  Receipt Date: 20140304
  Transmission Date: 20141002
  Serious: No
  Sender: FDA-Public Use
  Company Number: US-ABBVIE-13P-163-1078060-00

PATIENT
  Age: 60 Year
  Sex: Female

DRUGS (4)
  1. HUMIRA [Suspect]
     Indication: PUSTULAR PSORIASIS
     Route: 058
     Dates: start: 200501, end: 200901
  2. HUMIRA [Suspect]
     Indication: PUSTULAR PSORIASIS
     Route: 058
     Dates: start: 201301
  3. HUMIRA [Suspect]
  4. UNKNOWN BIOLOGIC [Suspect]
     Indication: PRODUCT USED FOR UNKNOWN INDICATION
     Dates: start: 2009, end: 2013

REACTIONS (3)
  - Folliculitis [Not Recovered/Not Resolved]
  - Abscess [Not Recovered/Not Resolved]
  - Drug ineffective [Unknown]
